FAERS Safety Report 9165310 (Version 1)
Quarter: 2013Q1

REPORT INFORMATION
  Report Type: Spontaneous
  Country: GB (occurrence: None)
  Receive Date: 20130228
  Receipt Date: 20130228
  Transmission Date: 20140127
  Serious: Yes (Other)
  Sender: FDA-Public Use
  Company Number: GER/UKI/13/0028218

PATIENT
  Age: 33 Year
  Sex: Female
  Weight: 55.33 kg

DRUGS (1)
  1. SERTRALINE (SERTRALINE) (SERTRALINE) [Suspect]
     Indication: DEPRESSION
     Route: 048
     Dates: start: 2010, end: 20130201

REACTIONS (2)
  - Paraesthesia [None]
  - Presyncope [None]
